FAERS Safety Report 21422918 (Version 2)
Quarter: 2023Q1

REPORT INFORMATION
  Report Type: Spontaneous
  Country: US (occurrence: US)
  Receive Date: 20221007
  Receipt Date: 20230111
  Transmission Date: 20230418
  Serious: Yes (Other)
  Sender: FDA-Public Use
  Company Number: US-JNJFOC-20220960706

PATIENT
  Age: 67 Year
  Sex: Female
  Weight: 57.204 kg

DRUGS (2)
  1. REMICADE [Suspect]
     Active Substance: INFLIXIMAB
     Indication: Rheumatoid arthritis
     Route: 041
     Dates: start: 20220902
  2. RINVOQ [Concomitant]
     Active Substance: UPADACITINIB
     Indication: Rheumatoid arthritis

REACTIONS (4)
  - Mental impairment [Recovering/Resolving]
  - Muscular weakness [Recovering/Resolving]
  - Hypokinesia [Recovering/Resolving]
  - Infection [Recovering/Resolving]
